FAERS Safety Report 8034160-0 (Version None)
Quarter: 2012Q1

REPORT INFORMATION
  Report Type: 
  Country: None (occurrence: None)
  Receive Date: 20120110
  Receipt Date: 20120104
  Transmission Date: 20120608
  Serious: No
  Sender: FDA-Public Use
  Company Number: US-B.I. PHARMACEUTICALS,INC./RIDGEFIELD-2011-BP-27877BP

PATIENT
  Sex: Female

DRUGS (3)
  1. COMBIVENT [Suspect]
     Indication: DYSPNOEA
     Dosage: 6 PUF
  2. ALBUTEROL [Concomitant]
  3. FLOVENT [Concomitant]

REACTIONS (2)
  - PARAESTHESIA ORAL [None]
  - GLOSSODYNIA [None]
